FAERS Safety Report 16952117 (Version 1)
Quarter: 2019Q4

REPORT INFORMATION
  Report Type: Spontaneous
  Country: US (occurrence: US)
  Receive Date: 20191022
  Receipt Date: 20191022
  Transmission Date: 20200122
  Serious: No
  Sender: FDA-Public Use
  Company Number: None

PATIENT

DRUGS (2)
  1. FLORINEF ACETATE [Suspect]
     Active Substance: FLUDROCORTISONE ACETATE
  2. PROAMATINE [Suspect]
     Active Substance: MIDODRINE HYDROCHLORIDE

REACTIONS (2)
  - Condition aggravated [None]
  - Drug ineffective [None]
